FAERS Safety Report 10073959 (Version 1)
Quarter: 2014Q2

REPORT INFORMATION
  Report Type: Spontaneous
  Country: US (occurrence: US)
  Receive Date: 20140411
  Receipt Date: 20140411
  Transmission Date: 20141212
  Serious: No
  Sender: FDA-Public Use
  Company Number: US-SA-2013SA110830

PATIENT
  Age: 78 Year
  Sex: Female
  Weight: 91.62 kg

DRUGS (1)
  1. ALLEGRA D [Suspect]
     Route: 048

REACTIONS (6)
  - Throat irritation [Unknown]
  - Drug ineffective [Unknown]
  - Eye pruritus [Unknown]
  - Eye pain [Unknown]
  - Upper-airway cough syndrome [Unknown]
  - Foreign body [Recovered/Resolved]
